FAERS Safety Report 6572440-6 (Version None)
Quarter: 2010Q1

REPORT INFORMATION
  Report Type: 
  Country: None (occurrence: None)
  Receive Date: 20100205
  Receipt Date: 20100129
  Transmission Date: 20100710
  Serious: Yes (Death, Hospitalization, Other)
  Sender: FDA-Public Use
  Company Number: BR-PFIZER INC-2010012297

PATIENT
  Age: 27 Year
  Sex: Female

DRUGS (2)
  1. REVATIO [Suspect]
     Indication: PULMONARY ARTERIAL HYPERTENSION
     Dosage: 20 MG, 3 DAY
     Route: 048
     Dates: start: 20091217, end: 20091230
  2. CAPTOPRIL [Concomitant]

REACTIONS (4)
  - CARDIAC PACEMAKER INSERTION [None]
  - CARDIOGENIC SHOCK [None]
  - MALAISE [None]
  - PULMONARY HYPERTENSION [None]
